FAERS Safety Report 19165771 (Version 1)
Quarter: 2021Q2

REPORT INFORMATION
  Report Type: Spontaneous
  Country: FR (occurrence: FR)
  Receive Date: 20210422
  Receipt Date: 20210422
  Transmission Date: 20210717
  Serious: Yes (Other)
  Sender: FDA-Public Use
  Company Number: FR-ROCHE-2814828

PATIENT
  Age: 59 Year
  Sex: Female
  Weight: 68 kg

DRUGS (3)
  1. XELODA [Suspect]
     Active Substance: CAPECITABINE
     Indication: PRODUCT USED FOR UNKNOWN INDICATION
     Dosage: DOSAGE INCONNU.
     Route: 048
     Dates: start: 20190101
  2. CACIT (FRANCE) [Concomitant]
     Dosage: POSOLOGIE ET DOSAGE INCONNU.
     Route: 048
  3. XGEVA [Concomitant]
     Active Substance: DENOSUMAB
     Route: 058

REACTIONS (1)
  - Peripheral ischaemia [Not Recovered/Not Resolved]

NARRATIVE: CASE EVENT DATE: 20210224
